FAERS Safety Report 9628389 (Version 3)
Quarter: 2013Q4

REPORT INFORMATION
  Report Type: Spontaneous
  Country: US (occurrence: US)
  Receive Date: 20131017
  Receipt Date: 20131119
  Transmission Date: 20140711
  Serious: No
  Sender: FDA-Public Use
  Company Number: US-PFIZER INC-2013293768

PATIENT
  Age: 58 Year
  Sex: Female
  Weight: 61.2 kg

DRUGS (6)
  1. ESTRING [Suspect]
     Indication: VULVOVAGINAL DRYNESS
     Dosage: UNK
     Route: 067
     Dates: start: 201301
  2. ESTRING [Suspect]
     Indication: VULVOVAGINAL PRURITUS
  3. METOPROLOL TARTRATE [Concomitant]
     Indication: HYPERTENSION
     Dosage: 50 MG, 1X/DAY
  4. NEURONTIN [Concomitant]
     Dosage: 1800 MG, DAILY (NIGHTLY)
     Route: 048
     Dates: start: 20130313
  5. LOPRESSOR [Concomitant]
     Indication: HYPERTENSION
     Dosage: 50 MG, 2X/DAY
     Route: 048
     Dates: start: 20130226
  6. NORVASC [Concomitant]
     Dosage: 10 MG, DAILY
     Route: 048
     Dates: start: 20130226

REACTIONS (4)
  - Malaise [Not Recovered/Not Resolved]
  - Vaginal infection [Not Recovered/Not Resolved]
  - Vulvovaginal mycotic infection [Recovered/Resolved]
  - Incorrect drug administration duration [Not Recovered/Not Resolved]
